FAERS Safety Report 8790521 (Version 1)
Quarter: 2012Q4

REPORT INFORMATION
  Report Type: Spontaneous
  Country: US (occurrence: None)
  Receive Date: 20120912
  Receipt Date: 20120912
  Transmission Date: 20130627
  Serious: Yes (Life-Threatening, Hospitalization)
  Sender: FDA-Public Use
  Company Number: None

PATIENT
  Age: 43 Year
  Sex: Female
  Weight: 117 kg

DRUGS (2)
  1. PSYLLIUM [Suspect]
     Indication: CONSTIPATION
     Dates: start: 20120909, end: 20120909
  2. PSYLLIUM [Suspect]
     Indication: CONSTIPATION
     Dates: start: 20120910, end: 20120910

REACTIONS (5)
  - Paraesthesia [None]
  - Angioedema [None]
  - Hyperhidrosis [None]
  - Dyspnoea [None]
  - Hypoaesthesia eye [None]
